FAERS Safety Report 6467549-1 (Version None)
Quarter: 2009Q4

REPORT INFORMATION
  Report Type: 
  Country: None (occurrence: None)
  Receive Date: 20091202
  Receipt Date: 20091104
  Transmission Date: 20100525
  Serious: No
  Sender: FDA-Public Use
  Company Number: US-BAYER-200916589BCC

PATIENT
  Age: 18 Year
  Sex: Female

DRUGS (1)
  1. ALEVE [Suspect]
     Indication: PAIN
     Route: 048

REACTIONS (1)
  - PAIN [None]
